FAERS Safety Report 23634911 (Version 2)
Quarter: 2024Q2

REPORT INFORMATION
  Report Type: Spontaneous
  Country: FR (occurrence: FR)
  Receive Date: 20240315
  Receipt Date: 20240401
  Transmission Date: 20240716
  Serious: Yes (Death, Hospitalization)
  Sender: FDA-Public Use
  Company Number: FR-TEVA-VS-3168710

PATIENT
  Age: 87 Year
  Sex: Female

DRUGS (6)
  1. AMOXICILLIN\CLAVULANIC ACID [Suspect]
     Active Substance: AMOXICILLIN\CLAVULANIC ACID
     Indication: Bacteraemia
     Route: 065
     Dates: start: 202005
  2. OXACILLIN [Suspect]
     Active Substance: OXACILLIN SODIUM
     Indication: Bacteraemia
     Route: 042
     Dates: start: 202005, end: 202005
  3. CEFTRIAXONE [Concomitant]
     Active Substance: CEFTRIAXONE\CEFTRIAXONE SODIUM
     Indication: Bacteraemia
     Route: 042
     Dates: start: 202005, end: 202005
  4. METRONIDAZOLE [Suspect]
     Active Substance: METRONIDAZOLE
     Indication: Bacteraemia
     Route: 042
     Dates: start: 20200519
  5. CEFEPIME [Suspect]
     Active Substance: CEFEPIME HYDROCHLORIDE
     Indication: Bacteraemia
     Dosage: IN THE EVENING
     Route: 042
     Dates: start: 20200519, end: 202005
  6. CEFEPIME [Suspect]
     Active Substance: CEFEPIME HYDROCHLORIDE
     Indication: Bacteraemia
     Route: 042
     Dates: start: 20200522

REACTIONS (1)
  - Drug ineffective [Fatal]
